FAERS Safety Report 12431790 (Version 1)
Quarter: 2016Q2

REPORT INFORMATION
  Report Type: Spontaneous
  Country: US (occurrence: US)
  Receive Date: 20160603
  Receipt Date: 20160603
  Transmission Date: 20160815
  Serious: No
  Sender: FDA-Public Use
  Company Number: US-SUN PHARMACEUTICAL INDUSTRIES LTD-2015SUN02047

PATIENT
  Age: 52 Year
  Sex: Female

DRUGS (5)
  1. XANAX [Concomitant]
     Active Substance: ALPRAZOLAM
  2. EMLA [Suspect]
     Active Substance: LIDOCAINE\PRILOCAINE
     Indication: PAIN PROPHYLAXIS
     Dosage: UNK
     Route: 061
     Dates: start: 20150916, end: 20150916
  3. ALBUTEROL. [Concomitant]
     Active Substance: ALBUTEROL
  4. ETHYL CHLORIDE [Suspect]
     Active Substance: ETHYL CHLORIDE
     Indication: PAIN PROPHYLAXIS
     Dosage: UNK, OD
     Route: 061
     Dates: start: 20150916, end: 20150916
  5. TECHNETIUM TC-99M SULFUR COLLOID KIT [Suspect]
     Active Substance: TECHNETIUM TC-99M SULFUR COLLOID
     Indication: LYMPHATIC MAPPING
     Dosage: 0.375 MCI, 4X
     Route: 058
     Dates: start: 20150916, end: 20150916

REACTIONS (5)
  - Urticaria [Recovering/Resolving]
  - Injection site swelling [Recovering/Resolving]
  - Injection site erythema [None]
  - Injection site pain [None]
  - Erythema [Recovering/Resolving]

NARRATIVE: CASE EVENT DATE: 20150916
